FAERS Safety Report 7427218-8 (Version None)
Quarter: 2011Q2

REPORT INFORMATION
  Report Type: 
  Country: None (occurrence: None)
  Receive Date: 20110420
  Receipt Date: 20110414
  Transmission Date: 20111010
  Serious: No
  Sender: FDA-Public Use
  Company Number: US-PFIZER INC-2008038619

PATIENT
  Sex: Female
  Weight: 65.8 kg

DRUGS (3)
  1. OMEPRAZOLE [Concomitant]
     Dosage: UNK
  2. LATANOPROST [Suspect]
  3. XALATAN [Suspect]
     Indication: GLAUCOMA
     Dosage: 1 DROP IN EACH EYE
     Route: 047

REACTIONS (3)
  - DRUG ADMINISTRATION ERROR [None]
  - DEVICE MALFUNCTION [None]
  - EYE DISORDER [None]
